FAERS Safety Report 5897883-5 (Version None)
Quarter: 2008Q3

REPORT INFORMATION
  Report Type: 
  Country: None (occurrence: None)
  Receive Date: 20080923
  Receipt Date: 20080502
  Transmission Date: 20090109
  Serious: Yes (Other)
  Sender: FDA-Public Use
  Company Number: 6045683

PATIENT
  Age: 34 Year
  Sex: Female

DRUGS (5)
  1. BICOR                   (BISOPROLOL FUMARATE) [Suspect]
     Indication: LEFT VENTRICULAR FAILURE
     Dosage: 1.25 MG (1.25 MG, 1 IN 1 D) ORAL; 2.5 MG (2.5 MG, 1 IN 1 D) ORAL
     Route: 048
     Dates: start: 20080122, end: 20080303
  2. BICOR                   (BISOPROLOL FUMARATE) [Suspect]
     Indication: LEFT VENTRICULAR FAILURE
     Dosage: 1.25 MG (1.25 MG, 1 IN 1 D) ORAL; 2.5 MG (2.5 MG, 1 IN 1 D) ORAL
     Route: 048
     Dates: start: 20080304, end: 20080311
  3. BICOR                   (BISOPROLOL FUMARATE) [Suspect]
     Indication: LEFT VENTRICULAR FAILURE
     Dosage: 1.25 MG (1.25 MG, 1 IN 1 D) ORAL; 2.5 MG (2.5 MG, 1 IN 1 D) ORAL
     Route: 048
     Dates: start: 20080318, end: 20080425
  4. NITRAZEPAM [Concomitant]
  5. SPIRIVA [Concomitant]

REACTIONS (10)
  - ANXIETY [None]
  - DEPRESSION [None]
  - DIZZINESS [None]
  - HEADACHE [None]
  - HEARING IMPAIRED [None]
  - INSOMNIA [None]
  - IRRITABILITY [None]
  - PERSONALITY CHANGE [None]
  - TEARFULNESS [None]
  - VISUAL IMPAIRMENT [None]
